FAERS Safety Report 19248977 (Version 1)
Quarter: 2021Q2

REPORT INFORMATION
  Report Type: Spontaneous
  Country: CA (occurrence: CA)
  Receive Date: 20210512
  Receipt Date: 20210512
  Transmission Date: 20210717
  Serious: Yes (Other)
  Sender: FDA-Public Use
  Company Number: CA-BAXTER-2021BAX010120

PATIENT
  Age: 12 Year
  Sex: Male
  Weight: 84 kg

DRUGS (8)
  1. SEVOFLURANE. [Suspect]
     Active Substance: SEVOFLURANE
     Indication: MAINTENANCE OF ANAESTHESIA
     Dosage: DOSAGE FORM: LIQUID INHALATION
     Route: 055
  2. ATENOLOL. [Concomitant]
     Active Substance: ATENOLOL
     Indication: GENE MUTATION
     Route: 065
  3. LOSARTAN POTASSIUM. [Concomitant]
     Active Substance: LOSARTAN POTASSIUM
     Indication: GENE MUTATION
     Route: 065
  4. PROPOFOL. [Suspect]
     Active Substance: PROPOFOL
     Indication: INDUCTION OF ANAESTHESIA
     Route: 065
  5. 0.9% SODIUM CHLORIDE INJECTION [Suspect]
     Active Substance: SODIUM CHLORIDE
     Indication: ANAESTHESIA PROCEDURE
     Route: 042
  6. FENTANYL. [Suspect]
     Active Substance: FENTANYL
     Indication: INDUCTION OF ANAESTHESIA
     Dosage: DOSAGE FORM: NOT SPECIFIED
     Route: 065
  7. ROCURONIUM [Suspect]
     Active Substance: ROCURONIUM BROMIDE
     Indication: ANAESTHESIA PROCEDURE
     Dosage: DOSAGE FORM: NOT SPECIFIED
     Route: 065
  8. SOLARCAINE [Suspect]
     Active Substance: .ALPHA.-TOCOPHEROL\ALOE VERA LEAF\GLYCERIN\LIDOCAINE\PARABENS
     Indication: INDUCTION OF ANAESTHESIA
     Dosage: FIRST AID LIDOCAINE SPRAY.?DOSAGE FORM: AEROSOL
     Route: 061

REACTIONS (2)
  - Pulse absent [Not Recovered/Not Resolved]
  - Hypotension [Not Recovered/Not Resolved]
